FAERS Safety Report 21578738 (Version 1)
Quarter: 2022Q4

REPORT INFORMATION
  Report Type: Spontaneous
  Country: FR (occurrence: FR)
  Receive Date: 20221110
  Receipt Date: 20221110
  Transmission Date: 20230113
  Serious: Yes (Hospitalization)
  Sender: FDA-Public Use
  Company Number: None

PATIENT
  Age: 69 Year
  Sex: Female
  Weight: 80.35 kg

DRUGS (3)
  1. PANTOPRAZOLE [Suspect]
     Active Substance: PANTOPRAZOLE
     Indication: Product used for unknown indication
     Dosage: 1 DOSAGE FORMS DAILY; 1 TAB/DAY, DURATION : 19 DAYS
     Route: 065
     Dates: start: 20220921, end: 20221010
  2. TRIMEBUTINE [Suspect]
     Active Substance: TRIMEBUTINE
     Indication: Product used for unknown indication
     Dosage: 1CP 3 TIMES A DAY, DURATION : 19 DAYS
     Route: 065
     Dates: start: 20220921, end: 20221010
  3. IOMERON [Suspect]
     Active Substance: IOMEPROL
     Indication: Computerised tomogram
     Dosage: IOMERON 350 (350 MG IODINE/ML), DURATION : 1 DAY
     Route: 065
     Dates: start: 20221004, end: 20221004

REACTIONS (1)
  - Toxic skin eruption [Recovering/Resolving]

NARRATIVE: CASE EVENT DATE: 20221009
